FAERS Safety Report 23289957 (Version 3)
Quarter: 2024Q1

REPORT INFORMATION
  Report Type: Report from Study
  Country: GB (occurrence: GB)
  Receive Date: 20231212
  Receipt Date: 20240319
  Transmission Date: 20240409
  Serious: Yes (Hospitalization, Other)
  Sender: FDA-Public Use
  Company Number: GB-ABBVIE-5483994

PATIENT
  Sex: Male

DRUGS (1)
  1. HUMIRA [Suspect]
     Active Substance: ADALIMUMAB
     Indication: Psoriasis
     Dosage: FORM STRENGTH: 40 MG
     Route: 058

REACTIONS (6)
  - Loss of consciousness [Unknown]
  - Rib fracture [Unknown]
  - Pneumonia [Unknown]
  - Fall [Unknown]
  - Fall [Unknown]
  - Lower respiratory tract infection [Unknown]

NARRATIVE: CASE EVENT DATE: 20240124
